FAERS Safety Report 20291206 (Version 2)
Quarter: 2022Q1

REPORT INFORMATION
  Report Type: Report from Study
  Country: US (occurrence: US)
  Receive Date: 20220104
  Receipt Date: 20220113
  Transmission Date: 20220423
  Serious: Yes (Other)
  Sender: FDA-Public Use
  Company Number: US-JNJFOC-20211265530

PATIENT
  Age: 57 Year
  Sex: Female
  Weight: 88.984 kg

DRUGS (3)
  1. SPRAVATO [Suspect]
     Active Substance: ESKETAMINE
     Indication: Depression
     Dosage: 56 MG, 11 TOTAL DOSE
     Dates: start: 20211012, end: 20211209
  2. SPRAVATO [Suspect]
     Active Substance: ESKETAMINE
     Dosage: 56 MG, 1 TOTAL DOSE
     Dates: start: 20211223, end: 20211223
  3. REXULTI [Concomitant]
     Active Substance: BREXPIPRAZOLE
     Indication: Product used for unknown indication
     Route: 048
     Dates: start: 20210208

REACTIONS (3)
  - Hypertension [Recovered/Resolved]
  - Headache [Recovered/Resolved]
  - Dissociation [Recovered/Resolved]

NARRATIVE: CASE EVENT DATE: 20211223
